FAERS Safety Report 15300000 (Version 1)
Quarter: 2018Q3

REPORT INFORMATION
  Report Type: Report from Study
  Country: US (occurrence: US)
  Receive Date: 20180821
  Receipt Date: 20180821
  Transmission Date: 20181010
  Serious: Yes (Death, Other)
  Sender: FDA-Public Use
  Company Number: US-GILEAD-2018-0356581

PATIENT
  Age: 79 Year
  Sex: Female

DRUGS (6)
  1. MEGESTROL [Concomitant]
     Active Substance: MEGESTROL
  2. AMBRISENTAN [Suspect]
     Active Substance: AMBRISENTAN
     Indication: PULMONARY HYPERTENSION
     Dosage: 10 MG, QD
     Route: 065
     Dates: start: 20140828
  3. FOLIC ACID. [Concomitant]
     Active Substance: FOLIC ACID
  4. PREVIDENT [Concomitant]
     Active Substance: SODIUM FLUORIDE
  5. TORSEMIDE. [Concomitant]
     Active Substance: TORSEMIDE
  6. METOLAZONE. [Concomitant]
     Active Substance: METOLAZONE

REACTIONS (2)
  - Neoplasm malignant [Unknown]
  - Feeding disorder [Fatal]

NARRATIVE: CASE EVENT DATE: 201806
